FAERS Safety Report 21296222 (Version 6)
Quarter: 2022Q4

REPORT INFORMATION
  Report Type: Spontaneous
  Country: US (occurrence: US)
  Receive Date: 20220906
  Receipt Date: 20221005
  Transmission Date: 20230113
  Serious: No
  Sender: FDA-Public Use
  Company Number: US-AMGEN-USASP2022150870

PATIENT
  Age: 73 Year
  Sex: Female

DRUGS (2)
  1. NEULASTA [Suspect]
     Active Substance: PEGFILGRASTIM
     Indication: Product used for unknown indication
     Dosage: UNK, AFTER CHEMO
     Route: 065
  2. LORATADINE [Concomitant]
     Active Substance: LORATADINE
     Dosage: UNK

REACTIONS (3)
  - Device malfunction [Unknown]
  - White blood cell count decreased [Unknown]
  - Bone pain [Unknown]

NARRATIVE: CASE EVENT DATE: 20180101
